FAERS Safety Report 8211811-9 (Version None)
Quarter: 2012Q1

REPORT INFORMATION
  Report Type: 
  Country: None (occurrence: None)
  Receive Date: 20120229
  Receipt Date: 20111209
  Transmission Date: 20120608
  Serious: Yes (Hospitalization)
  Sender: FDA-Public Use
  Company Number: PHEH2010US03853

PATIENT
  Sex: Male

DRUGS (1)
  1. TEGRETOL [Suspect]
     Indication: CONVULSION

REACTIONS (19)
  - SKIN LESION [None]
  - PIGMENTATION DISORDER [None]
  - SKIN DISCOLOURATION [None]
  - MUCOUS MEMBRANE DISORDER [None]
  - INTERNAL INJURY [None]
  - MUSCULAR WEAKNESS [None]
  - STEVENS-JOHNSON SYNDROME [None]
  - PRURITUS [None]
  - HYPERSENSITIVITY [None]
  - RASH [None]
  - SKIN EXFOLIATION [None]
  - URTICARIA [None]
  - NAIL DISORDER [None]
  - SKIN BURNING SENSATION [None]
  - ALOPECIA [None]
  - TOXIC EPIDERMAL NECROLYSIS [None]
  - SCAR [None]
  - BLINDNESS [None]
  - SWELLING [None]
